FAERS Safety Report 24857557 (Version 1)
Quarter: 2025Q1

REPORT INFORMATION
  Report Type: Spontaneous
  Country: US (occurrence: None)
  Receive Date: 20250117
  Receipt Date: 20250117
  Transmission Date: 20250408
  Serious: No
  Sender: FDA-CTU
  Company Number: None

PATIENT

DRUGS (2)
  1. PREMARIN [Suspect]
     Active Substance: ESTROGENS, CONJUGATED
  2. VAGIFEM [Suspect]
     Active Substance: ESTRADIOL

REACTIONS (2)
  - Skin discomfort [None]
  - Drug intolerance [None]

NARRATIVE: CASE EVENT DATE: 20250116
